FAERS Safety Report 4785968-6 (Version None)
Quarter: 2005Q3

REPORT INFORMATION
  Report Type: 
  Country: None (occurrence: None)
  Receive Date: 20050930
  Receipt Date: 20050920
  Transmission Date: 20060218
  Serious: Yes (Hospitalization)
  Sender: FDA-Public Use
  Company Number: 200512990GDS

PATIENT

DRUGS (1)
  1. AVELOX [Suspect]
     Dosage: NI, UNK
     Route: 065

REACTIONS (2)
  - CLOSTRIDIAL INFECTION [None]
  - MEGACOLON [None]
